FAERS Safety Report 21775560 (Version 1)
Quarter: 2022Q4

REPORT INFORMATION
  Report Type: Other
  Country: AT (occurrence: None)
  Receive Date: 20221226
  Receipt Date: 20221226
  Transmission Date: 20230112
  Serious: Yes (Other)
  Sender: FDA-Public Use
  Company Number: AT-ROCHE-3231269

PATIENT
  Age: 55 Year
  Sex: Male

DRUGS (6)
  1. RITUXIMAB [Suspect]
     Active Substance: RITUXIMAB
     Indication: Glomerulonephritis membranous
     Dosage: FIRST DOSE
     Route: 065
  2. RITUXIMAB [Suspect]
     Active Substance: RITUXIMAB
     Indication: Immunoglobulin G4 related disease
     Dosage: SECOND REDUCED DOSE
     Route: 065
  3. OBINUTUZUMAB [Concomitant]
     Active Substance: OBINUTUZUMAB
     Indication: Glomerulonephritis membranous
     Dosage: ON DAY 1 AND 15.
  4. OBINUTUZUMAB [Concomitant]
     Active Substance: OBINUTUZUMAB
     Indication: Immunoglobulin G4 related disease
  5. PREDNISOLONE [Concomitant]
     Active Substance: PREDNISOLONE
     Indication: Glomerulonephritis membranous
  6. PREDNISOLONE [Concomitant]
     Active Substance: PREDNISOLONE
     Indication: Immunoglobulin G4 related disease

REACTIONS (2)
  - Anaphylactic reaction [Unknown]
  - Off label use [Unknown]
